FAERS Safety Report 6695415-5 (Version None)
Quarter: 2010Q2

REPORT INFORMATION
  Report Type: 
  Country: None (occurrence: None)
  Receive Date: 20100424
  Receipt Date: 20100413
  Transmission Date: 20101027
  Serious: Yes (Hospitalization, Disabling)
  Sender: FDA-Public Use
  Company Number: US-ELI_LILLY_AND_COMPANY-US200911005518

PATIENT
  Sex: Female
  Weight: 68.027 kg

DRUGS (14)
  1. ZYPREXA [Suspect]
     Indication: DEPRESSION
     Dosage: 15 MG, DAILY (1/D)
     Dates: start: 20000501, end: 20070101
  2. ZYPREXA [Suspect]
     Dosage: 5 MG, UNK
  3. ZYPREXA [Suspect]
     Dosage: 2.5 MG, UNK
     Dates: start: 20080609
  4. SYMBYAX [Suspect]
     Dosage: 1 D/F, UNK
  5. ANTIPSYCHOTICS [Concomitant]
     Dates: start: 20000501, end: 20090601
  6. IMIPRAMINE PAMOATE [Concomitant]
     Dates: start: 20090701
  7. LIBRIUM [Concomitant]
     Dosage: 5 MG, EACH EVENING
  8. FLUOXETINE [Concomitant]
     Dosage: 40 MG, UNK
  9. PRISTIQ [Concomitant]
     Dosage: 50 MG, UNK
  10. GABAPENTIN [Concomitant]
     Dosage: 100 MG, UNK
  11. LEXAPRO [Concomitant]
     Dosage: 20 MG, UNK
  12. TOPAMAX [Concomitant]
     Dosage: 100 MG, UNK
  13. DIAZEPAM [Concomitant]
     Dosage: 2 MG, UNK
  14. TRAZODONE HCL [Concomitant]
     Dosage: 150 MG, UNK

REACTIONS (17)
  - ASTHENIA [None]
  - BALANCE DISORDER [None]
  - CAROTID ARTERY STENOSIS [None]
  - DIABETES MELLITUS [None]
  - HYPOGLYCAEMIA [None]
  - MEMORY IMPAIRMENT [None]
  - METABOLIC DISORDER [None]
  - NAUSEA [None]
  - NERVOUSNESS [None]
  - OFF LABEL USE [None]
  - OVERDOSE [None]
  - SUBCLAVIAN ARTERY STENOSIS [None]
  - TARDIVE DYSKINESIA [None]
  - URINARY INCONTINENCE [None]
  - VISION BLURRED [None]
  - WEIGHT INCREASED [None]
  - WHITE BLOOD CELL COUNT INCREASED [None]
